FAERS Safety Report 5911379-3 (Version None)
Quarter: 2008Q4

REPORT INFORMATION
  Report Type: 
  Country: None (occurrence: None)
  Receive Date: 20081007
  Receipt Date: 20080721
  Transmission Date: 20090506
  Serious: No
  Sender: FDA-Public Use
  Company Number: US-ASTRAZENECA-2008UW15172

PATIENT
  Age: 60 Year
  Sex: Female
  Weight: 74.8 kg

DRUGS (5)
  1. ARIMIDEX [Suspect]
     Route: 048
     Dates: start: 20060101
  2. VITAMIN D [Concomitant]
  3. METOPROLOL TARTRATE [Concomitant]
  4. EFFEXOR [Concomitant]
  5. KLONOPIN [Concomitant]

REACTIONS (1)
  - HYPOAESTHESIA [None]
